FAERS Safety Report 15919418 (Version 1)
Quarter: 2019Q1

REPORT INFORMATION
  Report Type: Spontaneous
  Country: US (occurrence: US)
  Receive Date: 20190205
  Receipt Date: 20190205
  Transmission Date: 20190417
  Serious: No
  Sender: FDA-Public Use
  Company Number: US-ROCHE-2075868

PATIENT
  Age: 77 Year
  Sex: Female
  Weight: 64.47 kg

DRUGS (1)
  1. XOLAIR [Suspect]
     Active Substance: OMALIZUMAB
     Indication: ASTHMA
     Route: 058
     Dates: start: 200701

REACTIONS (12)
  - Rash [Recovered/Resolved]
  - Confusional state [Not Recovered/Not Resolved]
  - Pruritus [Recovering/Resolving]
  - Peripheral swelling [Recovered/Resolved]
  - Abdominal discomfort [Unknown]
  - Joint swelling [Recovered/Resolved]
  - Fatigue [Not Recovered/Not Resolved]
  - Sleep disorder [Not Recovered/Not Resolved]
  - Ear swelling [Recovered/Resolved]
  - Swelling face [Recovering/Resolving]
  - Blister [Recovered/Resolved]
  - Burning sensation [Recovering/Resolving]

NARRATIVE: CASE EVENT DATE: 20171123
